FAERS Safety Report 8042286-0 (Version None)
Quarter: 2012Q1

REPORT INFORMATION
  Report Type: 
  Country: None (occurrence: None)
  Receive Date: 20120112
  Receipt Date: 20120110
  Transmission Date: 20120608
  Serious: Yes (Other)
  Sender: FDA-Public Use
  Company Number: US-ROCHE-793983

PATIENT
  Sex: Male
  Weight: 109.87 kg

DRUGS (1)
  1. ACCUTANE [Suspect]
     Indication: ACNE
     Route: 048
     Dates: start: 19940728, end: 19950801

REACTIONS (6)
  - IRRITABLE BOWEL SYNDROME [None]
  - DEPRESSION [None]
  - EMOTIONAL DISTRESS [None]
  - COLITIS ULCERATIVE [None]
  - INFLAMMATORY BOWEL DISEASE [None]
  - ARTHRITIS [None]
